FAERS Safety Report 11107641 (Version 1)
Quarter: 2015Q2

REPORT INFORMATION
  Report Type: Report from Study
  Country: FR (occurrence: FR)
  Receive Date: 20150512
  Receipt Date: 20150512
  Transmission Date: 20150821
  Serious: Yes (Hospitalization)
  Sender: FDA-Public Use
  Company Number: FR-BAXTER-2015BAX024968

PATIENT
  Age: 66 Year
  Sex: Male

DRUGS (5)
  1. ENDOXAN 1000 MG, LYOPHILISAT POUR SOLUTION INJECTABLE [Suspect]
     Active Substance: CYCLOPHOSPHAMIDE
     Route: 065
     Dates: start: 20070509, end: 20070509
  2. FLUDARABINE [Suspect]
     Active Substance: FLUDARABINE PHOSPHATE
     Route: 065
     Dates: start: 20070509, end: 20070509
  3. ENDOXAN 1000 MG, LYOPHILISAT POUR SOLUTION INJECTABLE [Suspect]
     Active Substance: CYCLOPHOSPHAMIDE
     Indication: MANTLE CELL LYMPHOMA
     Route: 065
     Dates: start: 20070507
  4. RITUXIMAB [Suspect]
     Active Substance: RITUXIMAB
     Indication: MANTLE CELL LYMPHOMA
     Route: 065
     Dates: start: 20070507, end: 20070507
  5. FLUDARABINE [Suspect]
     Active Substance: FLUDARABINE PHOSPHATE
     Indication: MANTLE CELL LYMPHOMA
     Route: 065
     Dates: start: 20070507

REACTIONS (1)
  - Chondrocalcinosis [Recovering/Resolving]

NARRATIVE: CASE EVENT DATE: 20070528
